FAERS Safety Report 19690299 (Version 1)
Quarter: 2021Q3

REPORT INFORMATION
  Report Type: Spontaneous
  Country: US (occurrence: US)
  Receive Date: 20210811
  Receipt Date: 20210811
  Transmission Date: 20211014
  Serious: Yes (Life-Threatening, Hospitalization)
  Sender: FDA-Public Use
  Company Number: None

PATIENT
  Age: 42 Year
  Sex: Female

DRUGS (1)
  1. HUMIRA [Suspect]
     Active Substance: ADALIMUMAB
     Dosage: OTHER FREQUENCY:OTHER;?
     Route: 058
     Dates: start: 202106

REACTIONS (4)
  - Near death experience [None]
  - Cyanosis [None]
  - Skin discolouration [None]
  - COVID-19 [None]

NARRATIVE: CASE EVENT DATE: 20210804
